FAERS Safety Report 21161860 (Version 2)
Quarter: 2022Q3

REPORT INFORMATION
  Report Type: Spontaneous
  Country: GB (occurrence: GB)
  Receive Date: 20220802
  Receipt Date: 20220930
  Transmission Date: 20221027
  Serious: Yes (Other)
  Sender: FDA-Public Use
  Company Number: GB-AMGEN-GBRSP2019047495

PATIENT
  Age: 56 Year
  Sex: Female

DRUGS (18)
  1. TRASTUZUMAB [Suspect]
     Active Substance: TRASTUZUMAB
     Indication: HER2 positive breast cancer
     Dosage: 483 MILLIGRAM
     Route: 042
     Dates: start: 20161115, end: 20161115
  2. TRASTUZUMAB [Suspect]
     Active Substance: TRASTUZUMAB
     Dosage: 357 MILLIGRAM, Q3WK
     Route: 042
     Dates: start: 20161207, end: 20170301
  3. TRASTUZUMAB [Suspect]
     Active Substance: TRASTUZUMAB
     Dosage: 336 MILLIGRAM, Q3WK (MODIFIED DUE TO WEIGHT LOSS)
     Route: 042
     Dates: start: 20170301, end: 20170301
  4. TRASTUZUMAB [Suspect]
     Active Substance: TRASTUZUMAB
     Dosage: 315 MILLIGRAM, Q3WK 9MODIFIED DUE TO WEIGHT INCREASE)
     Route: 042
     Dates: start: 20170322
  5. PERTUZUMAB [Suspect]
     Active Substance: PERTUZUMAB
     Indication: HER2 positive breast cancer
     Dosage: 840 MILLIGRAM, Q2WK
     Route: 042
     Dates: start: 20161115, end: 20161115
  6. PERTUZUMAB [Suspect]
     Active Substance: PERTUZUMAB
     Dosage: 420 MILLIGRAM, Q3WK
     Route: 042
     Dates: start: 20161207
  7. DOCETAXEL [Suspect]
     Active Substance: DOCETAXEL
     Indication: HER2 positive breast cancer
     Dosage: 96 MILLIGRAM, Q3WK
     Route: 042
     Dates: start: 20161116, end: 20170301
  8. FILGRASTIM [Concomitant]
     Active Substance: FILGRASTIM
     Dosage: 300 MICROGRAM, QD (FOR 7 DAYS 24 HOURS POST CHEMOTHERAPY)
     Route: 058
     Dates: start: 20161231
  9. OMEPRAZOLE [Concomitant]
     Active Substance: OMEPRAZOLE
     Dosage: 20 MILLIGRAM, QD
     Route: 048
     Dates: start: 20161207
  10. LOPERAMIDE [Concomitant]
     Active Substance: LOPERAMIDE
     Dosage: 2 MILLIGRAM, AS NECESSARY
     Route: 048
     Dates: start: 20161207
  11. DEXAMETHASONE [Concomitant]
     Active Substance: DEXAMETHASONE
     Dosage: 16 MILLIGRAM, QD (TO BE TAKEN AT EACH CHEMOTHERAPY CYCLE DAY BEFORE TREATMENT, DAY OF TREATMENT AND
     Route: 048
     Dates: start: 20161229
  12. Adcal [Concomitant]
     Dosage: 3 GRAM, QD
     Route: 048
     Dates: start: 20130613
  13. Adcal [Concomitant]
     Dosage: 1.5 GRAM, BID
     Route: 048
  14. CHLORPHENIRAMINE MALEATE [Concomitant]
     Active Substance: CHLORPHENIRAMINE MALEATE
     Dosage: 10 MILLIGRAM (PRIOR TO CHEMOTHERAPY TREATMENT)
     Route: 042
     Dates: start: 20161207
  15. HYDROCORTISONE [Concomitant]
     Active Substance: HYDROCORTISONE
     Dosage: 100 MILLIGRAM (PRIOR TO CHEMOTHERAPY TREATMENT)
     Route: 042
     Dates: start: 20161207
  16. LETROZOLE [Concomitant]
     Active Substance: LETROZOLE
     Dosage: 2.5 MILLIGRAM, QD
     Route: 048
     Dates: start: 20130612
  17. METOCLOPRAMIDE [Concomitant]
     Active Substance: METOCLOPRAMIDE
     Dosage: 10 MILLIGRAM, Q3WK
     Route: 048
     Dates: start: 20161207
  18. ONDANSETRON [Concomitant]
     Active Substance: ONDANSETRON
     Dosage: 8 MILLIGRAM (PRIOR TO CHEMOTHERAPY)
     Route: 042
     Dates: start: 20161207

REACTIONS (6)
  - Syncope [Recovered/Resolved]
  - Cerebral small vessel ischaemic disease [Not Recovered/Not Resolved]
  - Swelling [Recovered/Resolved]
  - Pruritus [Recovered/Resolved]
  - Off label use [Unknown]
  - Amnesia [Unknown]

NARRATIVE: CASE EVENT DATE: 20190117
